FAERS Safety Report 21881308 (Version 1)
Quarter: 2023Q1

REPORT INFORMATION
  Report Type: Report from Study
  Country: US (occurrence: US)
  Receive Date: 20230119
  Receipt Date: 20230119
  Transmission Date: 20230418
  Serious: No
  Sender: FDA-Public Use
  Company Number: US-ABBVIE-4240206

PATIENT
  Sex: Male
  Weight: 77.11 kg

DRUGS (1)
  1. SKYRIZI [Suspect]
     Active Substance: RISANKIZUMAB-RZAA
     Indication: Coeliac disease
     Dosage: ONSET FOR LATE DOSE CAUSED ISSUES AND INCREASED SYMPTOMS OF CROHN^S DISEASE 2022
     Route: 058
     Dates: start: 20221005

REACTIONS (1)
  - Crohn^s disease [Unknown]
